FAERS Safety Report 5084279-1 (Version None)
Quarter: 2006Q3

REPORT INFORMATION
  Report Type: 
  Country: None (occurrence: None)
  Receive Date: 20060816
  Receipt Date: 20060807
  Transmission Date: 20061208
  Serious: Yes (Other)
  Sender: FDA-Public Use
  Company Number: 2006096690

PATIENT
  Sex: Female

DRUGS (1)
  1. ROGAINE [Suspect]
     Indication: HYPOTRICHOSIS
     Dosage: MORE THAN 1ML TWICE A DAY, TOPICAL
     Route: 061
     Dates: start: 19960101

REACTIONS (1)
  - BREAST CANCER FEMALE [None]
